FAERS Safety Report 17409985 (Version 1)
Quarter: 2020Q1

REPORT INFORMATION
  Report Type: Spontaneous
  Country: SA (occurrence: SA)
  Receive Date: 20200212
  Receipt Date: 20200212
  Transmission Date: 20200409
  Serious: Yes (Hospitalization)
  Sender: FDA-Public Use
  Company Number: SA-PFIZER INC-2020049973

PATIENT
  Age: 28 Year
  Sex: Male

DRUGS (1)
  1. PREGABALIN. [Suspect]
     Active Substance: PREGABALIN
     Indication: NEUROPATHY PERIPHERAL
     Dosage: 75 MG, 2X/DAY
     Dates: start: 201812

REACTIONS (1)
  - Inappropriate antidiuretic hormone secretion [Unknown]

NARRATIVE: CASE EVENT DATE: 20181228
